FAERS Safety Report 12389689 (Version 1)
Quarter: 2016Q2

REPORT INFORMATION
  Report Type: Spontaneous
  Country: IT (occurrence: IT)
  Receive Date: 20160520
  Receipt Date: 20160520
  Transmission Date: 20160815
  Serious: Yes (Death)
  Sender: FDA-Public Use
  Company Number: IT-TEVA-659473ACC

PATIENT
  Age: 71 Year
  Sex: Male

DRUGS (9)
  1. FOSPHOMYCIN [Suspect]
     Active Substance: FOSFOMYCIN
     Indication: PNEUMONIA STAPHYLOCOCCAL
     Dosage: 8 GRAM DAILY;
  2. COLISTIMETHATE SODIUM. [Suspect]
     Active Substance: COLISTIMETHATE SODIUM
     Indication: MENINGITIS BACTERIAL
     Dosage: DAILY
  3. DOXYCYCLINE. [Suspect]
     Active Substance: DOXYCYCLINE
     Indication: PNEUMONITIS
     Dosage: 200 MILLIGRAM DAILY;
     Route: 048
  4. RIFAMPICIN [Suspect]
     Active Substance: RIFAMPIN
     Indication: MENINGITIS BACTERIAL
     Dosage: 600 MILLIGRAM DAILY;
  5. DOXICICLINA [Concomitant]
     Indication: PNEUMONITIS
     Dosage: 200 G
  6. MEROPENEM. [Suspect]
     Active Substance: MEROPENEM
     Indication: PNEUMONITIS
     Dosage: 3 GRAM DAILY;
  7. VANCOMYCIN [Concomitant]
     Active Substance: VANCOMYCIN
     Indication: MENINGITIS BACTERIAL
  8. TEICOPLANIN [Concomitant]
     Active Substance: TEICOPLANIN
     Indication: PRODUCT USED FOR UNKNOWN INDICATION
  9. IMIPENEM [Concomitant]
     Active Substance: IMIPENEM
     Indication: MENINGITIS BACTERIAL

REACTIONS (7)
  - Drug ineffective [Fatal]
  - Pneumonia [Fatal]
  - Drug hypersensitivity [Fatal]
  - Staphylococcal infection [Fatal]
  - Acute respiratory failure [Fatal]
  - Off label use [Fatal]
  - Pneumonia klebsiella [Fatal]
